FAERS Safety Report 20256758 (Version 1)
Quarter: 2021Q4

REPORT INFORMATION
  Report Type: Spontaneous
  Country: US (occurrence: US)
  Receive Date: 20211230
  Receipt Date: 20211230
  Transmission Date: 20220303
  Serious: Yes (Other)
  Sender: FDA-Public Use
  Company Number: US-PURDUE-USA-2020-0232173

PATIENT
  Sex: Male

DRUGS (2)
  1. OXYCONTIN [Suspect]
     Active Substance: OXYCODONE HYDROCHLORIDE
     Indication: Pain
     Dosage: UNKNOWN
     Route: 048
     Dates: start: 1994, end: 2014
  2. METHADONE [Suspect]
     Active Substance: METHADONE HYDROCHLORIDE
     Indication: Drug dependence
     Dosage: UNKNOWN
     Route: 065
     Dates: start: 2004, end: 2010

REACTIONS (4)
  - Drug dependence [Recovered/Resolved]
  - Emotional distress [Unknown]
  - Pain [Unknown]
  - Drug withdrawal syndrome [Unknown]

NARRATIVE: CASE EVENT DATE: 19990101
